FAERS Safety Report 10229171 (Version 1)
Quarter: 2014Q2

REPORT INFORMATION
  Report Type: Spontaneous
  Country: US (occurrence: US)
  Receive Date: 20140611
  Receipt Date: 20140611
  Transmission Date: 20141212
  Serious: Yes (Hospitalization)
  Sender: FDA-Public Use
  Company Number: US-ROCHE-1416688

PATIENT
  Age: 63 Year
  Sex: Female

DRUGS (1)
  1. XOLAIR [Suspect]
     Indication: ASTHMA
     Dosage: INJECT 1.2ML MONTHLY
     Route: 058
     Dates: start: 201401

REACTIONS (3)
  - Asthma [Unknown]
  - Musculoskeletal discomfort [Unknown]
  - Myalgia [Unknown]
